FAERS Safety Report 5939541-4 (Version None)
Quarter: 2008Q4

REPORT INFORMATION
  Report Type: 
  Country: None (occurrence: None)
  Receive Date: 20081029
  Receipt Date: 20081015
  Transmission Date: 20090506
  Serious: Yes (Death)
  Sender: FDA-Public Use
  Company Number: 08P-056-0482263-00

PATIENT
  Age: 2 Month
  Sex: Female
  Weight: 2.15 kg

DRUGS (1)
  1. SYNAGIS [Suspect]
     Dosage: (4 MG)
     Route: 030
     Dates: start: 20081010, end: 20081010

REACTIONS (2)
  - REGURGITATION [None]
  - SUDDEN DEATH [None]
